FAERS Safety Report 17114535 (Version 8)
Quarter: 2021Q4

REPORT INFORMATION
  Report Type: Report from Study
  Country: US (occurrence: US)
  Receive Date: 20191205
  Receipt Date: 20211022
  Transmission Date: 20220303
  Serious: No
  Sender: FDA-Public Use
  Company Number: NVSC2019US046557

PATIENT
  Age: 48 Year
  Sex: Male

DRUGS (2)
  1. MAYZENT [Suspect]
     Active Substance: SIPONIMOD
     Indication: Multiple sclerosis
     Dosage: 2 MG, QD
     Route: 048
     Dates: start: 20191106
  2. MAYZENT [Suspect]
     Active Substance: SIPONIMOD
     Dosage: 2 MG, QD (1 TAB EVERY OTHER DAY)
     Route: 048
     Dates: start: 201911, end: 202110

REACTIONS (8)
  - Sinusitis [Recovered/Resolved]
  - Sinusitis [Recovering/Resolving]
  - Balance disorder [Not Recovered/Not Resolved]
  - Fatigue [Recovering/Resolving]
  - Headache [Not Recovered/Not Resolved]
  - Blood pressure increased [Recovering/Resolving]
  - Liver function test increased [Recovering/Resolving]
  - Drug ineffective [Unknown]

NARRATIVE: CASE EVENT DATE: 20191101
